FAERS Safety Report 7344041-3 (Version None)
Quarter: 2011Q1

REPORT INFORMATION
  Report Type: 
  Country: None (occurrence: None)
  Receive Date: 20110310
  Receipt Date: 20100510
  Transmission Date: 20110831
  Serious: No
  Sender: FDA-Public Use
  Company Number: A0858880A

PATIENT
  Age: 24 Year
  Sex: Female

DRUGS (1)
  1. NICORETTE (MINT) [Suspect]
     Dates: start: 20100507, end: 20100507

REACTIONS (2)
  - RASH [None]
  - PRURITUS [None]
